FAERS Safety Report 4387411-8 (Version None)
Quarter: 2004Q2

REPORT INFORMATION
  Report Type: 
  Country: None (occurrence: None)
  Receive Date: 20040630
  Receipt Date: 20040422
  Transmission Date: 20050107
  Serious: No
  Sender: FDA-Public Use
  Company Number: US-GLAXOSMITHKLINE-A0508091A

PATIENT
  Age: 45 Year
  Sex: Female

DRUGS (5)
  1. ADVAIR HFA [Suspect]
     Indication: ASTHMA
     Dosage: 1PUFF TWICE PER DAY
     Route: 055
     Dates: start: 20040421
  2. ZYRTEC [Concomitant]
  3. ORAL CONTRACEPTIVE [Concomitant]
  4. ZELNORM [Concomitant]
  5. ANXIOLYTIC [Concomitant]

REACTIONS (1)
  - SYNCOPE [None]
